FAERS Safety Report 22650154 (Version 1)
Quarter: 2023Q2

REPORT INFORMATION
  Report Type: Report from Study
  Country: BR (occurrence: BR)
  Receive Date: 20230628
  Receipt Date: 20230628
  Transmission Date: 20230722
  Serious: Yes (Hospitalization)
  Sender: FDA-Public Use
  Company Number: BR-ALNYLAM PHARMACEUTICALS, INC.-ALN-2023-003014

PATIENT

DRUGS (2)
  1. GIVLAARI [Suspect]
     Active Substance: GIVOSIRAN SODIUM
     Indication: Porphyria acute
     Dosage: UNK, MONTHLY
     Route: 058
     Dates: start: 20230316, end: 20230427
  2. OXYCODONE [Concomitant]
     Active Substance: OXYCODONE
     Indication: Pain
     Dosage: UNK
     Route: 065
     Dates: start: 2021

REACTIONS (7)
  - Porphyria acute [Recovering/Resolving]
  - Pain in extremity [Recovering/Resolving]
  - Sensory loss [Recovering/Resolving]
  - Atrophy [Recovering/Resolving]
  - Abdominal pain [Not Recovered/Not Resolved]
  - Chromaturia [Recovering/Resolving]
  - Nausea [Unknown]

NARRATIVE: CASE EVENT DATE: 20230608
